FAERS Safety Report 16878060 (Version 3)
Quarter: 2019Q4

REPORT INFORMATION
  Report Type: Spontaneous
  Country: PE (occurrence: PE)
  Receive Date: 20191002
  Receipt Date: 20191218
  Transmission Date: 20200122
  Serious: Yes (Death, Hospitalization)
  Sender: FDA-Public Use
  Company Number: PE-JNJFOC-20190935721

PATIENT
  Age: 40 Year
  Sex: Male
  Weight: 69 kg

DRUGS (8)
  1. CLOFAZIMINE [Suspect]
     Active Substance: CLOFAZIMINE
     Indication: TUBERCULOSIS
     Dosage: 200 MG FOR 2 MONTHS
     Route: 048
     Dates: start: 20180507, end: 20190810
  2. PYRAZINAMIDE. [Suspect]
     Active Substance: PYRAZINAMIDE
     Indication: TUBERCULOSIS
     Route: 048
     Dates: start: 20180507, end: 20190810
  3. KANAMYCIN [Suspect]
     Active Substance: KANAMYCIN A SULFATE
     Indication: TUBERCULOSIS
     Route: 030
     Dates: start: 20180507, end: 20190425
  4. KANAMYCIN [Suspect]
     Active Substance: KANAMYCIN A SULFATE
     Route: 030
  5. SIRTURO [Suspect]
     Active Substance: BEDAQUILINE FUMARATE
     Indication: TUBERCULOSIS
     Dosage: 400 MG FOR 14 DAYS AND 200 MG FOR 300 WEEKS
     Route: 048
     Dates: start: 20180507, end: 20190408
  6. CYCLOSERINE. [Suspect]
     Active Substance: CYCLOSERINE
     Indication: TUBERCULOSIS
     Route: 065
     Dates: start: 20180507, end: 20190810
  7. LINEZOLID. [Suspect]
     Active Substance: LINEZOLID
     Indication: TUBERCULOSIS
     Route: 048
     Dates: start: 20180507, end: 20190810
  8. PYRIDOXINE [Concomitant]
     Active Substance: PYRIDOXINE
     Indication: PRODUCT USED FOR UNKNOWN INDICATION
     Route: 048
     Dates: start: 20180507, end: 20190810

REACTIONS (4)
  - Off label use [Unknown]
  - Intentional product use issue [Unknown]
  - Mental impairment [Unknown]
  - Respiratory failure [Fatal]

NARRATIVE: CASE EVENT DATE: 20190809
